FAERS Safety Report 6623796-7 (Version None)
Quarter: 2010Q1

REPORT INFORMATION
  Report Type: 
  Country: None (occurrence: None)
  Receive Date: 20100310
  Receipt Date: 20100225
  Transmission Date: 20100710
  Serious: Yes (Other)
  Sender: FDA-Public Use
  Company Number: PHHY2010ES11230

PATIENT
  Age: 53 Year
  Sex: Male

DRUGS (1)
  1. ACLASTA [Suspect]
     Indication: CALCIUM DEFICIENCY
     Dosage: 5 MG
     Route: 042
     Dates: start: 20080714

REACTIONS (2)
  - INFLUENZA LIKE ILLNESS [None]
  - VISUAL ACUITY REDUCED [None]
